FAERS Safety Report 16500200 (Version 2)
Quarter: 2019Q3

REPORT INFORMATION
  Report Type: Spontaneous
  Country: JP (occurrence: JP)
  Receive Date: 20190701
  Receipt Date: 20190723
  Transmission Date: 20191004
  Serious: Yes (Other)
  Sender: FDA-Public Use
  Company Number: JP-ACCORD-135792

PATIENT
  Age: 81 Year
  Sex: Female

DRUGS (7)
  1. BEVACIZUMAB. [Concomitant]
     Active Substance: BEVACIZUMAB
     Indication: COLON CANCER STAGE IV
  2. AMLODIPINE [Concomitant]
     Active Substance: AMLODIPINE BESYLATE
  3. CAPECITABINE. [Suspect]
     Active Substance: CAPECITABINE
     Indication: COLORECTAL CANCER
     Dosage: XELOX AND BMAB 8 COURSES
  4. OXALIPLATIN. [Suspect]
     Active Substance: OXALIPLATIN
     Indication: COLORECTAL CANCER
     Dosage: 3 COURSE OF FOLFLOX AND XELOX AND BMAB 8 COURSES.DURING 4TH COURSE
  5. IRON [Concomitant]
     Active Substance: IRON
  6. FOLINIC ACID [Suspect]
     Active Substance: LEUCOVORIN
     Indication: COLORECTAL CANCER
     Dosage: 3 COURSE OF FOLFLOX AND BMAB THERAPY.DURING 4TH COURSE
  7. FLUOROURACIL. [Suspect]
     Active Substance: FLUOROURACIL
     Indication: COLORECTAL CANCER
     Dosage: 3 COURCE FOLFOX6 AND BMAB THERAPY,HIGH DOSE FU.DURING 4TH COURSE,HIGH-DOSE

REACTIONS (3)
  - Nausea [Unknown]
  - Decreased appetite [Unknown]
  - Hyperammonaemia [Recovered/Resolved]
